FAERS Safety Report 4768075-8 (Version None)
Quarter: 2005Q3

REPORT INFORMATION
  Report Type: 
  Country: None (occurrence: None)
  Receive Date: 20050912
  Receipt Date: 20050912
  Transmission Date: 20060218
  Serious: Yes (Life-Threatening, Hospitalization)
  Sender: FDA-Public Use
  Company Number: None

PATIENT
  Age: 55 Year
  Sex: Female
  Weight: 115.6672 kg

DRUGS (2)
  1. FENTANYL [Suspect]
     Indication: ANAESTHESIA
     Dosage: 350 MG   ONCE   IV BOLUS
     Route: 040
     Dates: start: 20050621, end: 20050621
  2. PROPOFOL [Suspect]
     Indication: ANAESTHESIA
     Dosage: 150 MG   ONCE   IV BOLUS
     Route: 040
     Dates: start: 20050621, end: 20050621

REACTIONS (2)
  - GRAND MAL CONVULSION [None]
  - POST PROCEDURAL COMPLICATION [None]
